FAERS Safety Report 7785298-4 (Version None)
Quarter: 2011Q3

REPORT INFORMATION
  Report Type: 
  Country: None (occurrence: None)
  Receive Date: 20110929
  Receipt Date: 20110923
  Transmission Date: 20111222
  Serious: No
  Sender: FDA-Public Use
  Company Number: US-PFIZER INC-2007010885

PATIENT
  Age: 89 Year
  Sex: Female

DRUGS (6)
  1. NORVASC [Suspect]
     Dosage: 2.5 MG, UNK
  2. NORVASC [Suspect]
  3. AMLODIPINE BESYLATE [Suspect]
     Dosage: UNK
  4. NORVASC [Suspect]
     Dosage: 2.5 MG, UNK
  5. HYDROCHLOROTHIAZIDE [Concomitant]
     Dosage: UNK
  6. PLAVIX [Concomitant]
     Dosage: UNK

REACTIONS (2)
  - BLOOD PRESSURE INCREASED [None]
  - OEDEMA PERIPHERAL [None]
